FAERS Safety Report 14566174 (Version 10)
Quarter: 2021Q4

REPORT INFORMATION
  Report Type: Spontaneous
  Country: US (occurrence: US)
  Receive Date: 20180223
  Receipt Date: 20211129
  Transmission Date: 20220304
  Serious: Yes (Hospitalization, Other)
  Sender: FDA-Public Use
  Company Number: US-PFIZER INC-2018078331

PATIENT
  Age: 55 Year
  Sex: Female
  Weight: 71.202 kg

DRUGS (2)
  1. AMLODIPINE BESYLATE [Suspect]
     Active Substance: AMLODIPINE BESYLATE
     Indication: Hypertension
     Dosage: UNK
  2. AMLODIPINE BESYLATE [Suspect]
     Active Substance: AMLODIPINE BESYLATE
     Dosage: 5 MG, DAILY
     Route: 048
     Dates: start: 2013

REACTIONS (19)
  - Loss of consciousness [Unknown]
  - Heart rate abnormal [Unknown]
  - Cough [Unknown]
  - Headache [Unknown]
  - Palpitations [Unknown]
  - Migraine [Unknown]
  - Nausea [Unknown]
  - Vomiting [Unknown]
  - Diarrhoea [Unknown]
  - Condition aggravated [Unknown]
  - Drug ineffective [Unknown]
  - Rash [Unknown]
  - Pruritus [Unknown]
  - Pain [Unknown]
  - Muscle spasms [Unknown]
  - Dizziness [Unknown]
  - Chest pain [Unknown]
  - Heart rate increased [Unknown]
  - Drug hypersensitivity [Unknown]

NARRATIVE: CASE EVENT DATE: 20160501
